FAERS Safety Report 6742074-9 (Version None)
Quarter: 2010Q2

REPORT INFORMATION
  Report Type: 
  Country: None (occurrence: None)
  Receive Date: 20100526
  Receipt Date: 20100514
  Transmission Date: 20101027
  Serious: Yes (Other)
  Sender: FDA-Public Use
  Company Number: PHHY2010CA31544

PATIENT
  Sex: Male

DRUGS (6)
  1. ALISKIREN ALI+ [Suspect]
     Indication: HYPERTENSION
     Dosage: 150 MG, UNK
     Route: 048
     Dates: start: 20100219, end: 20100222
  2. COVERSYL PLUS [Concomitant]
     Dosage: UNK
     Dates: start: 20100219
  3. NORVASC [Concomitant]
     Dosage: UNK
     Dates: start: 20100219
  4. CALCIUM CHANNEL BLOCKERS [Concomitant]
  5. DIURETICS [Concomitant]
  6. ACE INHIBITOR NOS [Concomitant]

REACTIONS (3)
  - PIGMENTATION DISORDER [None]
  - PRURITUS [None]
  - RASH GENERALISED [None]
